FAERS Safety Report 14593249 (Version 3)
Quarter: 2019Q1

REPORT INFORMATION
  Report Type: Spontaneous
  Country: US (occurrence: US)
  Receive Date: 20180302
  Receipt Date: 20190102
  Transmission Date: 20190417
  Serious: No
  Sender: FDA-Public Use
  Company Number: US-PFIZER INC-2018088032

PATIENT
  Age: 65 Year
  Sex: Female

DRUGS (2)
  1. FELDENE [Suspect]
     Active Substance: PIROXICAM
     Dosage: UNK
  2. EPINEPHRINE. [Suspect]
     Active Substance: EPINEPHRINE
     Dosage: UNK

REACTIONS (1)
  - Drug hypersensitivity [Unknown]
